FAERS Safety Report 5200104-X (Version None)
Quarter: 2007Q1

REPORT INFORMATION
  Report Type: 
  Country: None (occurrence: None)
  Receive Date: 20070105
  Receipt Date: 20061226
  Transmission Date: 20070707
  Serious: Yes (Other)
  Sender: FDA-Public Use
  Company Number: FR-GLAXOSMITHKLINE-B0451659A

PATIENT
  Age: 45 Year
  Sex: Female

DRUGS (1)
  1. SERETIDE [Suspect]
     Indication: ASTHMA
     Dosage: 2PUFF PER DAY
     Route: 055
     Dates: start: 19940101

REACTIONS (15)
  - ARTHRALGIA [None]
  - ASTHMA [None]
  - CUSHING'S SYNDROME [None]
  - DYSPHONIA [None]
  - EYELID OEDEMA [None]
  - FLUID RETENTION [None]
  - GAIT DISTURBANCE [None]
  - GASTRIC BANDING [None]
  - HYPERTENSION [None]
  - HYPOKALAEMIA [None]
  - LOCAL SWELLING [None]
  - SKIN IRRITATION [None]
  - SKIN STRIAE [None]
  - SWELLING FACE [None]
  - WEIGHT INCREASED [None]
